FAERS Safety Report 9490752 (Version 2)
Quarter: 2013Q3

REPORT INFORMATION
  Report Type: Spontaneous
  Country: US (occurrence: US)
  Receive Date: 20130830
  Receipt Date: 20130910
  Transmission Date: 20140515
  Serious: No
  Sender: FDA-Public Use
  Company Number: US-BAYER-2013-101047

PATIENT
  Age: 56 Year
  Sex: Male

DRUGS (1)
  1. NEXAVAR [Suspect]
     Indication: HEPATIC CANCER
     Dosage: 200MG 2 TABLETS DAILY
     Dates: start: 20130813

REACTIONS (2)
  - Abdominal pain upper [None]
  - Nausea [None]
